FAERS Safety Report 9616869 (Version 2)
Quarter: 2013Q4

REPORT INFORMATION
  Report Type: Report from Study
  Country: ES (occurrence: ES)
  Receive Date: 20131011
  Receipt Date: 20131011
  Transmission Date: 20140711
  Serious: Yes (Hospitalization)
  Sender: FDA-Public Use
  Company Number: ES-ROCHE-802110

PATIENT
  Age: 54 Year
  Sex: Female

DRUGS (6)
  1. TRASTUZUMAB EMTANSINE [Suspect]
     Indication: BREAST CANCER METASTATIC
     Dosage: DATE OF LAST DOSE PRIOR TO SAE: 11/AUG/2013
     Route: 042
     Dates: start: 20110701
  2. PERTUZUMAB [Suspect]
     Indication: BREAST CANCER METASTATIC
     Dosage: DATE OF LAST DOSE PRIOR TO SAE: 11/AUG/2013
     Route: 042
     Dates: start: 20110701
  3. CITALOPRAM [Concomitant]
     Indication: ANXIETY DISORDER
     Route: 065
     Dates: start: 2006
  4. ESOMEPRAZOLE [Concomitant]
     Route: 065
     Dates: start: 20091211
  5. ALPRAZOLAM [Concomitant]
     Route: 065
     Dates: start: 2006
  6. LINEZOLID [Concomitant]
     Indication: CELLULITIS
     Route: 065
     Dates: start: 20110720, end: 20110724

REACTIONS (1)
  - Gastroenteritis viral [Recovered/Resolved]
